FAERS Safety Report 14499332 (Version 1)
Quarter: 2018Q1

REPORT INFORMATION
  Report Type: Spontaneous
  Country: NO (occurrence: NO)
  Receive Date: 20180207
  Receipt Date: 20180207
  Transmission Date: 20180509
  Serious: Yes (Hospitalization)
  Sender: FDA-Public Use
  Company Number: NO-MYLANLABS-2018M1007567

PATIENT
  Age: 85 Year
  Sex: Female

DRUGS (5)
  1. SYMBICORT [Concomitant]
     Active Substance: BUDESONIDE\FORMOTEROL FUMARATE DIHYDRATE
     Indication: ASTHMA
     Dosage: 2 DF, BID (INTERVAL- 12 HOURS)
     Route: 055
  2. PARACET                            /00020001/ [Concomitant]
     Active Substance: ACETAMINOPHEN
     Indication: OSTEOARTHRITIS
     Dosage: 500 MG, BID (INTERVAL- 12 HOURS)
     Route: 048
  3. FURADANTIN [Suspect]
     Active Substance: NITROFURANTOIN
     Indication: CYSTITIS
     Dosage: 50 MG, Q8H
     Route: 048
     Dates: start: 20171201, end: 20171206
  4. ATACAND [Concomitant]
     Active Substance: CANDESARTAN CILEXETIL
     Indication: HYPERTENSION
     Dosage: 4 MG, QD
     Route: 048
  5. ELIQUIS [Concomitant]
     Active Substance: APIXABAN
     Indication: PULMONARY EMBOLISM
     Dosage: 2.5 MG, BID (INTERVAL- 12 HOURS)
     Route: 048

REACTIONS (2)
  - Dyspnoea [Recovering/Resolving]
  - Hypoxia [Recovering/Resolving]

NARRATIVE: CASE EVENT DATE: 20171203
